FAERS Safety Report 9778430 (Version 1)
Quarter: 2013Q4

REPORT INFORMATION
  Report Type: Spontaneous
  Country: US (occurrence: None)
  Receive Date: 20131219
  Receipt Date: 20131219
  Transmission Date: 20140711
  Serious: Yes (Hospitalization, Other)
  Sender: FDA-Public Use
  Company Number: 13004058

PATIENT
  Age: 65 Year
  Sex: Male
  Weight: 88.4 kg

DRUGS (11)
  1. SLO-NIACIN [Suspect]
     Indication: PRODUCT USED FOR UNKNOWN INDICATION
     Route: 048
     Dates: end: 201310
  2. FISH OIL [Suspect]
     Indication: NUTRITIONAL SUPPLEMENTATION
     Dates: start: 20131002, end: 20131114
  3. SIMVASTATIN (SIMVASTATIN) [Suspect]
     Indication: PRODUCT USED FOR UNKNOWN INDICATION
     Dates: end: 201310
  4. METOPROLOL (METOPROLOL TARTRATE) [Concomitant]
  5. TRIAMETERENE AND HYDROCHLOROTHIAZIDE (HYDROCHLOROTHIAZIDE, TRIAMTERENE) [Concomitant]
  6. MULTIVITAMMIN (VITAMINS NOS) [Concomitant]
  7. LISINOPRIL (LISINOPRIL) [Concomitant]
  8. CARVEDILOL (CARVEDILOL) [Concomitant]
  9. DOCUSATE SODIUM (DOCUSATE SODIUM) [Concomitant]
  10. ASPIRIN (ACETYLSALICYLIC ACID) [Concomitant]
  11. CALCIUM WITH VITAMIN D (CALCIUM CARBONATE, COLECALCIFEROL) [Concomitant]

REACTIONS (12)
  - Hepatic function abnormal [None]
  - Flatulence [None]
  - Eructation [None]
  - Nausea [None]
  - Vomiting [None]
  - Skin burning sensation [None]
  - Vision blurred [None]
  - Hallucination, visual [None]
  - Feeling abnormal [None]
  - Constipation [None]
  - Delirium [None]
  - Insomnia [None]
